FAERS Safety Report 13218707 (Version 2)
Quarter: 2022Q1

REPORT INFORMATION
  Report Type: Other
  Country: US (occurrence: US)
  Receive Date: 20170210
  Receipt Date: 20220123
  Transmission Date: 20220423
  Serious: Yes (Hospitalization, Disabling, Other)
  Sender: FDA-Public Use
  Company Number: US-ACORDA-ACO_125838_2016

PATIENT
  Age: 60 Year
  Sex: Male
  Weight: 72.562 kg

DRUGS (4)
  1. AMPYRA [Suspect]
     Active Substance: DALFAMPRIDINE
     Indication: Gait disturbance
     Dosage: 10 MG, BID
     Route: 048
     Dates: start: 20160603
  2. AUBAGIO [Suspect]
     Active Substance: TERIFLUNOMIDE
     Indication: Multiple sclerosis
     Dosage: 14 MILLIGRAM, QD
     Route: 048
     Dates: start: 20140610, end: 2014
  3. AUBAGIO [Suspect]
     Active Substance: TERIFLUNOMIDE
     Dosage: 14 MILLIGRAM, QD
     Route: 048
     Dates: start: 201408, end: 201604
  4. AUBAGIO [Suspect]
     Active Substance: TERIFLUNOMIDE
     Dosage: 14 MILLIGRAM, QD
     Route: 048
     Dates: start: 2016

REACTIONS (13)
  - Renal failure [Recovered/Resolved]
  - Condition aggravated [Recovered/Resolved]
  - Hemiplegia [Unknown]
  - Hemiparesis [Unknown]
  - Urinary tract infection bacterial [Recovered/Resolved]
  - Multiple sclerosis [Unknown]
  - Gait disturbance [Recovered/Resolved]
  - Dysstasia [Unknown]
  - Memory impairment [Unknown]
  - Blood creatinine increased [Unknown]
  - Hypoaesthesia [Unknown]
  - Drug ineffective [Unknown]
  - Product dose omission issue [Unknown]

NARRATIVE: CASE EVENT DATE: 20160601
